FAERS Safety Report 7082611-0 (Version None)
Quarter: 2010Q4

REPORT INFORMATION
  Report Type: 
  Country: None (occurrence: None)
  Receive Date: 20101104
  Receipt Date: 20101025
  Transmission Date: 20110411
  Serious: Yes (Other)
  Sender: FDA-Public Use
  Company Number: US-JNJFOC-20100806004

PATIENT
  Sex: Female

DRUGS (1)
  1. RISPERDAL CONSTA [Suspect]
     Indication: ILL-DEFINED DISORDER
     Route: 030

REACTIONS (3)
  - DRUG ADMINISTRATION ERROR [None]
  - DRUG DOSE OMISSION [None]
  - PRODUCT QUALITY ISSUE [None]
